FAERS Safety Report 11077697 (Version 3)
Quarter: 2015Q2

REPORT INFORMATION
  Report Type: Spontaneous
  Country: US (occurrence: US)
  Receive Date: 20150430
  Receipt Date: 20150616
  Transmission Date: 20150821
  Serious: Yes (Other)
  Sender: FDA-Public Use
  Company Number: US-BEH-2015049433

PATIENT
  Age: 39 Year
  Sex: Female
  Weight: 63.5 kg

DRUGS (14)
  1. HIZENTRA [Suspect]
     Active Substance: HUMAN IMMUNOGLOBULIN G
     Indication: HYPOGAMMAGLOBULINAEMIA
  2. HIZENTRA [Suspect]
     Active Substance: HUMAN IMMUNOGLOBULIN G
     Indication: IMMUNODEFICIENCY COMMON VARIABLE
     Route: 058
     Dates: start: 20141218, end: 20150324
  3. AUGMENTIN [Concomitant]
     Active Substance: AMOXICILLIN\CLAVULANATE POTASSIUM
  4. PRENATAL VITAMINS [Concomitant]
     Active Substance: VITAMINS
  5. DIPHENHYDRAMINE [Concomitant]
     Active Substance: DIPHENHYDRAMINE
  6. NASALCROM [Concomitant]
     Active Substance: CROMOLYN SODIUM
  7. CEFDINIR. [Concomitant]
     Active Substance: CEFDINIR
  8. ACETAMINOPHEN. [Concomitant]
     Active Substance: ACETAMINOPHEN
  9. EPIPEN [Concomitant]
     Active Substance: EPINEPHRINE
  10. HIZENTRA [Suspect]
     Active Substance: HUMAN IMMUNOGLOBULIN G
  11. LMX [Concomitant]
     Active Substance: LIDOCAINE
  12. BIOTIN [Concomitant]
     Active Substance: BIOTIN
  13. CLARITIN [Concomitant]
     Active Substance: LORATADINE
  14. AVIMOX EYE DROPS [Concomitant]

REACTIONS (9)
  - Urticaria [Unknown]
  - Sinusitis [Recovered/Resolved]
  - Headache [Recovering/Resolving]
  - Back pain [Unknown]
  - Sinus operation [Unknown]
  - Rash [Unknown]
  - Sinusitis [Unknown]
  - Alopecia [Not Recovered/Not Resolved]
  - Back pain [Recovering/Resolving]

NARRATIVE: CASE EVENT DATE: 201501
